FAERS Safety Report 12575988 (Version 4)
Quarter: 2016Q3

REPORT INFORMATION
  Report Type: Report from Study
  Country: US (occurrence: US)
  Receive Date: 20160720
  Receipt Date: 20160811
  Transmission Date: 20161109
  Serious: Yes (Other)
  Sender: FDA-Public Use
  Company Number: US-GILEAD-2016-0219175

PATIENT
  Age: 72 Year
  Sex: Female

DRUGS (3)
  1. ADCIRCA [Suspect]
     Active Substance: TADALAFIL
     Indication: PULMONARY ARTERIAL HYPERTENSION
     Dosage: 40 MG, QD
     Route: 065
     Dates: start: 20160617, end: 20160719
  2. AMBRISENTAN [Suspect]
     Active Substance: AMBRISENTAN
     Indication: PULMONARY ARTERIAL HYPERTENSION
     Dosage: 5 MG, UNK
     Route: 065
     Dates: start: 20160609
  3. AMBRISENTAN [Suspect]
     Active Substance: AMBRISENTAN
     Dosage: 10 MG, QD
     Route: 065
     Dates: start: 20160614, end: 20160720

REACTIONS (12)
  - Oxygen saturation decreased [Not Recovered/Not Resolved]
  - Vision blurred [Not Recovered/Not Resolved]
  - Nasal congestion [Recovered/Resolved]
  - Nasal oedema [Unknown]
  - Eyelid oedema [Recovered/Resolved]
  - Ear discomfort [Unknown]
  - Panic attack [Unknown]
  - Headache [Not Recovered/Not Resolved]
  - Oedema peripheral [Not Recovered/Not Resolved]
  - Ear discomfort [Recovered/Resolved]
  - Lacrimation increased [Not Recovered/Not Resolved]
  - Dyspnoea [Recovered/Resolved]

NARRATIVE: CASE EVENT DATE: 20160620
